FAERS Safety Report 7623327-9 (Version None)
Quarter: 2011Q3

REPORT INFORMATION
  Report Type: 
  Country: None (occurrence: None)
  Receive Date: 20110720
  Receipt Date: 20110711
  Transmission Date: 20111222
  Serious: Yes (Hospitalization)
  Sender: FDA-Public Use
  Company Number: DK-JNJFOC-20110703833

PATIENT
  Sex: Male
  Weight: 68.9 kg

DRUGS (3)
  1. RISPERDAL [Suspect]
     Indication: MENTAL DISORDER
     Route: 048
     Dates: start: 20060101
  2. RISPERDAL [Suspect]
     Route: 048
     Dates: start: 20100401, end: 20101101
  3. RISPERDAL CONSTA [Suspect]
     Indication: MENTAL DISORDER
     Route: 030
     Dates: start: 20080101, end: 20100401

REACTIONS (13)
  - DIZZINESS [None]
  - WEIGHT INCREASED [None]
  - CONDITION AGGRAVATED [None]
  - LOSS OF CONSCIOUSNESS [None]
  - DECREASED ACTIVITY [None]
  - HEADACHE [None]
  - MUSCLE TWITCHING [None]
  - DYSKINESIA [None]
  - FALL [None]
  - MUSCLE SPASMS [None]
  - MUSCULAR WEAKNESS [None]
  - HEAD INJURY [None]
  - DYSPNOEA [None]
